FAERS Safety Report 6823755-5 (Version None)
Quarter: 2010Q3

REPORT INFORMATION
  Report Type: 
  Country: None (occurrence: None)
  Receive Date: 20100708
  Receipt Date: 20060903
  Transmission Date: 20110219
  Serious: No
  Sender: FDA-Public Use
  Company Number: US-PFIZER INC-2006108814

PATIENT
  Sex: Male

DRUGS (17)
  1. CHANTIX [Suspect]
     Indication: EX-TOBACCO USER
     Route: 048
     Dates: start: 20060823
  2. ADVAIR DISKUS 100/50 [Concomitant]
  3. CALCIUM CARBONATE [Concomitant]
  4. VITAMINS [Concomitant]
  5. LOVAZA [Concomitant]
  6. ATENOLOL [Concomitant]
  7. CITALOPRAM HYDROBROMIDE [Concomitant]
  8. FEXOFENADINE [Concomitant]
  9. VYTORIN [Concomitant]
  10. PROTONIX [Concomitant]
  11. PLAVIX [Concomitant]
  12. NIASPAN [Concomitant]
  13. ACCOLATE [Concomitant]
  14. ALTACE [Concomitant]
  15. ACTONEL [Concomitant]
  16. PREDNISONE [Concomitant]
  17. ANTIBIOTICS [Concomitant]

REACTIONS (2)
  - PRURITUS GENITAL [None]
  - SKIN IRRITATION [None]
